FAERS Safety Report 5962648-2 (Version None)
Quarter: 2008Q4

REPORT INFORMATION
  Report Type: 
  Country: None (occurrence: None)
  Receive Date: 20081121
  Receipt Date: 20081119
  Transmission Date: 20090506
  Serious: Yes (Death, Other)
  Sender: FDA-Public Use
  Company Number: PHBS2008TW06403

PATIENT
  Age: 32 Year
  Sex: Male

DRUGS (4)
  1. CYCLOSPORINE [Suspect]
     Indication: HEART TRANSPLANT
     Route: 048
  2. AZATHIOPRINE [Suspect]
     Indication: HEART TRANSPLANT
  3. PREDNISOLONE [Suspect]
     Indication: HEART TRANSPLANT
     Dosage: 0.5 MG/KG/DAY
  4. PREDNISOLONE [Suspect]
     Dosage: 0.2 MG/KG/DAY

REACTIONS (4)
  - COUGH [None]
  - PYREXIA [None]
  - SALMONELLOSIS [None]
  - SUDDEN DEATH [None]
